FAERS Safety Report 11171679 (Version 8)
Quarter: 2015Q4

REPORT INFORMATION
  Report Type: Report from Study
  Country: CA (occurrence: CA)
  Receive Date: 20150608
  Receipt Date: 20151207
  Transmission Date: 20160304
  Serious: Yes (Other)
  Sender: FDA-Public Use
  Company Number: PHHY2013CA108793

PATIENT
  Age: 76 Year
  Sex: Male

DRUGS (5)
  1. AFINITOR [Suspect]
     Active Substance: EVEROLIMUS
     Indication: NEUROENDOCRINE TUMOUR
     Dosage: 10 MG, QD
     Route: 048
     Dates: start: 20140128, end: 20140225
  2. SANDOSTATIN LAR DEPOT [Suspect]
     Active Substance: OCTREOTIDE ACETATE
     Indication: NEUROENDOCRINE TUMOUR
     Dosage: 30 MG, (QMO)
     Route: 030
     Dates: start: 20120730, end: 201511
  3. SANDOSTATIN [Suspect]
     Active Substance: OCTREOTIDE ACETATE
     Indication: NEUROENDOCRINE TUMOUR
     Dosage: 50 UG, ONCE/SINGLE
     Route: 058
     Dates: start: 20120723, end: 20120723
  4. AFINITOR [Suspect]
     Active Substance: EVEROLIMUS
     Dosage: 10 MG, QD
     Route: 048
     Dates: end: 20150204
  5. OXYBUTYNIN [Suspect]
     Active Substance: OXYBUTYNIN
     Indication: PRODUCT USED FOR UNKNOWN INDICATION
     Dosage: 5 MG, QD
     Route: 065
     Dates: end: 20150222

REACTIONS (29)
  - Sleep disorder [Unknown]
  - Hypotension [Unknown]
  - Tongue ulceration [Not Recovered/Not Resolved]
  - Anaemia [Unknown]
  - Faeces soft [Unknown]
  - Frequent bowel movements [Unknown]
  - Fatigue [Unknown]
  - Peripheral swelling [Unknown]
  - Metastases to thorax [Unknown]
  - Nausea [Unknown]
  - Hyperglycaemia [Unknown]
  - Malignant neoplasm progression [Unknown]
  - Pain in extremity [Unknown]
  - Dyspnoea [Recovered/Resolved]
  - Blood pressure diastolic decreased [Unknown]
  - Vision blurred [Recovered/Resolved]
  - Oedema peripheral [Recovered/Resolved]
  - Asthenia [Recovered/Resolved]
  - Erythema [Recovering/Resolving]
  - Blood pressure systolic increased [Unknown]
  - Dry mouth [Recovered/Resolved]
  - Drug ineffective [Unknown]
  - Mouth ulceration [Not Recovered/Not Resolved]
  - Pain [Unknown]
  - Arthralgia [Unknown]
  - Cellulitis [Unknown]
  - Diarrhoea [Unknown]
  - Injection site pain [Unknown]
  - Vomiting [Unknown]

NARRATIVE: CASE EVENT DATE: 20140215
